FAERS Safety Report 7262420-X (Version None)
Quarter: 2011Q1

REPORT INFORMATION
  Report Type: 
  Country: None (occurrence: None)
  Receive Date: 20110130
  Receipt Date: 20101116
  Transmission Date: 20110831
  Serious: No
  Sender: FDA-Public Use
  Company Number: US-ABBOTT-10P-163-0686326-00

PATIENT
  Sex: Female
  Weight: 72.64 kg

DRUGS (2)
  1. HUMIRA [Suspect]
     Indication: CROHN'S DISEASE
     Dates: start: 20090901
  2. AMITRIPTYLINE HCL [Concomitant]
     Indication: MIGRAINE

REACTIONS (3)
  - RASH PUSTULAR [None]
  - SKIN EXFOLIATION [None]
  - PRURITUS [None]
